FAERS Safety Report 10169809 (Version 1)
Quarter: 2014Q2

REPORT INFORMATION
  Report Type: Spontaneous
  Country: US (occurrence: US)
  Receive Date: 20140513
  Receipt Date: 20140513
  Transmission Date: 20141212
  Serious: No
  Sender: FDA-Public Use
  Company Number: US-009507513-1405USA001218

PATIENT
  Sex: Female

DRUGS (1)
  1. CLARITIN [Suspect]
     Indication: SINUS CONGESTION
     Dosage: UNK, UNKNOWN
     Route: 048
     Dates: start: 20140407

REACTIONS (2)
  - Dizziness [Not Recovered/Not Resolved]
  - Off label use [Unknown]
